FAERS Safety Report 15157475 (Version 2)
Quarter: 2018Q3

REPORT INFORMATION
  Report Type: Spontaneous
  Country: JP (occurrence: JP)
  Receive Date: 20180718
  Receipt Date: 20180719
  Transmission Date: 20181010
  Serious: Yes (Other)
  Sender: FDA-Public Use
  Company Number: JP-ROCHE-2156093

PATIENT
  Age: 14 Year
  Sex: Male

DRUGS (4)
  1. CICLOSPORIN [Suspect]
     Active Substance: CYCLOSPORINE
     Dosage: REDUCED TO 80 MG PER DAY
     Route: 065
  2. 15?DEOXYSPERGUALIN HYDROCHLORIDE [Concomitant]
  3. CELLCEPT [Suspect]
     Active Substance: MYCOPHENOLATE MOFETIL\MYCOPHENOLATE MOFETIL HYDROCHLORIDE
     Indication: PROPHYLAXIS AGAINST TRANSPLANT REJECTION
     Dosage: DOSE INTERVAL UNCERTAINTY
     Route: 048
  4. CICLOSPORIN [Suspect]
     Active Substance: CYCLOSPORINE
     Indication: PROPHYLAXIS AGAINST TRANSPLANT REJECTION
     Route: 065

REACTIONS (5)
  - Post transplant lymphoproliferative disorder [Recovering/Resolving]
  - Sleep apnoea syndrome [Unknown]
  - Tonsillar hypertrophy [Unknown]
  - Adenoidal hypertrophy [Recovering/Resolving]
  - Otitis media [Unknown]
